FAERS Safety Report 10137752 (Version 1)
Quarter: 2014Q2

REPORT INFORMATION
  Report Type: Spontaneous
  Country: US (occurrence: None)
  Receive Date: 20140428
  Receipt Date: 20140428
  Transmission Date: 20141212
  Serious: No
  Sender: FDA-Public Use
  Company Number: None

PATIENT
  Age: 18 Year
  Sex: Male
  Weight: 77.11 kg

DRUGS (1)
  1. VITALIKOR [Suspect]
     Indication: ERECTILE DYSFUNCTION
     Dates: start: 20130201, end: 20130606

REACTIONS (2)
  - Headache [None]
  - Malaise [None]
